FAERS Safety Report 4682966-8 (Version None)
Quarter: 2005Q2

REPORT INFORMATION
  Report Type: 
  Country: None (occurrence: None)
  Receive Date: 20050602
  Receipt Date: 20050208
  Transmission Date: 20051028
  Serious: No
  Sender: FDA-Public Use
  Company Number: USA050290269

PATIENT
  Age: 57 Year
  Sex: Female

DRUGS (3)
  1. CYMBALTA [Suspect]
     Indication: FIBROMYALGIA
     Dosage: 60 MG DAY
  2. LOPRESSOR [Concomitant]
  3. SYNTHROID [Concomitant]

REACTIONS (7)
  - APATHY [None]
  - DEPRESSED MOOD [None]
  - DEPRESSION [None]
  - FAT TISSUE INCREASED [None]
  - INSOMNIA [None]
  - INTRAOCULAR PRESSURE INCREASED [None]
  - MALAISE [None]
